FAERS Safety Report 8240172-4 (Version None)
Quarter: 2012Q1

REPORT INFORMATION
  Report Type: 
  Country: None (occurrence: None)
  Receive Date: 20120328
  Receipt Date: 20120323
  Transmission Date: 20120608
  Serious: Yes (Hospitalization)
  Sender: FDA-Public Use
  Company Number: MX-PFIZER INC-2012077145

PATIENT
  Age: 62 Year
  Sex: Female
  Weight: 114 kg

DRUGS (1)
  1. PIROXICAM [Suspect]

REACTIONS (1)
  - CELLULITIS [None]
